FAERS Safety Report 8212802-4 (Version None)
Quarter: 2012Q1

REPORT INFORMATION
  Report Type: 
  Country: None (occurrence: None)
  Receive Date: 20120315
  Receipt Date: 20120313
  Transmission Date: 20120608
  Serious: No
  Sender: FDA-Public Use
  Company Number: US-PFIZER INC-2012067148

PATIENT
  Sex: Female

DRUGS (3)
  1. LYRICA [Suspect]
     Indication: LIMB DISCOMFORT
     Dosage: UNKNOWN DOSE TWO TIMES A DAY
     Route: 048
     Dates: start: 20120301
  2. ARTHROTEC [Interacting]
     Dosage: UNK
     Route: 048
     Dates: start: 20120301
  3. LYRICA [Interacting]
     Indication: HERPES ZOSTER

REACTIONS (6)
  - DIZZINESS [None]
  - DRUG INTERACTION [None]
  - EUPHORIC MOOD [None]
  - DISORIENTATION [None]
  - DRUG INEFFECTIVE [None]
  - CONFUSIONAL STATE [None]
